FAERS Safety Report 16539535 (Version 1)
Quarter: 2019Q3

REPORT INFORMATION
  Report Type: Spontaneous
  Country: US (occurrence: US)
  Receive Date: 20190705
  Receipt Date: 20190705
  Transmission Date: 20191004
  Serious: Yes (Hospitalization)
  Sender: FDA-Public Use
  Company Number: None

PATIENT
  Age: 64 Year
  Sex: Male

DRUGS (17)
  1. MILK THISTLE CAP [Concomitant]
  2. PROPOXY HCL [Concomitant]
  3. OPSUMIT [Concomitant]
     Active Substance: MACITENTAN
  4. ALPRAZOLAM. [Concomitant]
     Active Substance: ALPRAZOLAM
  5. GARLIQUE [Concomitant]
     Active Substance: GARLIC
  6. SPIRONOLACT [Concomitant]
     Active Substance: SPIRONOLACTONE
  7. VITAMIN E [Concomitant]
     Active Substance: .ALPHA.-TOCOPHEROL
  8. METHOCARBAM [Concomitant]
     Active Substance: METHOCARBAMOL
  9. OMEPRAZOLE. [Concomitant]
     Active Substance: OMEPRAZOLE
  10. POTASSIUM CHLORIDE. [Concomitant]
     Active Substance: POTASSIUM CHLORIDE
  11. EPLERENONE. [Concomitant]
     Active Substance: EPLERENONE
  12. METAMUCIL [Concomitant]
     Active Substance: PLANTAGO SEED
  13. FUROSEMIDE. [Concomitant]
     Active Substance: FUROSEMIDE
  14. METOPROLOL. [Concomitant]
     Active Substance: METOPROLOL
  15. TADALAFIL. [Suspect]
     Active Substance: TADALAFIL
     Indication: PULMONARY HYPERTENSION
     Route: 048
     Dates: start: 20150826
  16. FERROUS SULFATE. [Concomitant]
     Active Substance: FERROUS SULFATE
  17. VITAMIN C [Concomitant]
     Active Substance: ASCORBIC ACID

REACTIONS (1)
  - Blood count abnormal [None]

NARRATIVE: CASE EVENT DATE: 20190702
